FAERS Safety Report 10705254 (Version 3)
Quarter: 2017Q1

REPORT INFORMATION
  Report Type: Spontaneous
  Country: US (occurrence: US)
  Receive Date: 20150112
  Receipt Date: 20170314
  Transmission Date: 20170428
  Serious: Yes (Other)
  Sender: FDA-Public Use
  Company Number: US-ELI_LILLY_AND_COMPANY-US201501000802

PATIENT
  Sex: Male
  Weight: 196 kg

DRUGS (3)
  1. CYMBALTA [Suspect]
     Active Substance: DULOXETINE HYDROCHLORIDE
     Indication: ANXIETY
     Dosage: 60 MG, EACH MORNING
     Route: 048
  2. CYMBALTA [Suspect]
     Active Substance: DULOXETINE HYDROCHLORIDE
     Indication: PAIN
     Dosage: 30 MG, QD
     Route: 048
     Dates: start: 20120322
  3. CYMBALTA [Suspect]
     Active Substance: DULOXETINE HYDROCHLORIDE
     Indication: DEPRESSION
     Dosage: 1 DF, UNKNOWN
     Dates: start: 2011, end: 201108

REACTIONS (17)
  - Influenza like illness [Unknown]
  - Abnormal behaviour [Unknown]
  - Dizziness [Unknown]
  - Insomnia [Unknown]
  - Sensory disturbance [Unknown]
  - Affect lability [Unknown]
  - Agitation [Unknown]
  - Confusional state [Unknown]
  - Mood swings [Unknown]
  - Dysphoria [Unknown]
  - Blood pressure abnormal [Unknown]
  - Abdominal discomfort [Unknown]
  - Anger [Unknown]
  - Aggression [Unknown]
  - Drug withdrawal syndrome [Unknown]
  - Nausea [Unknown]
  - Anxiety [Unknown]
